FAERS Safety Report 10455535 (Version 1)
Quarter: 2014Q3

REPORT INFORMATION
  Report Type: Spontaneous
  Country: US (occurrence: None)
  Receive Date: 20140815
  Receipt Date: 20140815
  Transmission Date: 20150326
  Serious: No
  Sender: FDA-Public Use
  Company Number: E2007-01685-SPO-US

PATIENT
  Age: 32 Year
  Sex: Male

DRUGS (8)
  1. KEPPRA [Concomitant]
     Active Substance: LEVETIRACETAM
  2. ZYPREXA [Concomitant]
     Active Substance: OLANZAPINE
  3. TRANXENE (CLORAZEPATE DIPOTASSIUM) (CAPSULES) (CLORAZEPATE DIPOTASSIUM) [Concomitant]
     Active Substance: CLORAZEPATE DIPOTASSIUM
  4. FYCOMPA [Suspect]
     Active Substance: PERAMPANEL
     Indication: DROP ATTACKS
     Route: 048
     Dates: start: 20140214, end: 20140217
  5. PHENOBARBITAL (PHENOBARBITAL) [Concomitant]
     Active Substance: PHENOBARBITAL
  6. TOPAMAX [Concomitant]
     Active Substance: TOPIRAMATE
  7. FYCOMPA [Suspect]
     Active Substance: PERAMPANEL
     Indication: CONVULSION
     Route: 048
     Dates: start: 20140214, end: 20140217
  8. BANZEL (RUFINAMIDE) [Concomitant]

REACTIONS (2)
  - Agitation [None]
  - Aggression [None]

NARRATIVE: CASE EVENT DATE: 20140214
